FAERS Safety Report 25671608 (Version 2)
Quarter: 2025Q4

REPORT INFORMATION
  Report Type: Spontaneous
  Country: US (occurrence: US)
  Receive Date: 20250812
  Receipt Date: 20251111
  Transmission Date: 20260117
  Serious: No
  Sender: LUMICELL
  Company Number: US-LUMICELL, INC.-2025LUM00041

PATIENT

DRUGS (1)
  1. LUMISIGHT [Suspect]
     Active Substance: PEGULICIANINE
     Indication: Breast cancer
     Dosage: UNK
     Dates: start: 20250623, end: 20250623

REACTIONS (2)
  - Procedural haemorrhage [Unknown]
  - Patient-device incompatibility [Unknown]

NARRATIVE: CASE EVENT DATE: 20250623
